FAERS Safety Report 4929983-8 (Version None)
Quarter: 2006Q1

REPORT INFORMATION
  Report Type: 
  Country: None (occurrence: None)
  Receive Date: 20060302
  Receipt Date: 20060223
  Transmission Date: 20060701
  Serious: Yes (Other)
  Sender: FDA-Public Use
  Company Number: PHNU2006DE01091

PATIENT
  Sex: Male

DRUGS (3)
  1. VALERIAN [Concomitant]
  2. DIOVAN [Suspect]
     Indication: HYPERTENSION
     Dosage: 1 DF, QD
     Dates: start: 19990101, end: 20060217
  3. DIOVAN [Suspect]
     Dosage: 1 DF, BID
     Dates: start: 20060218

REACTIONS (12)
  - BLOOD PRESSURE FLUCTUATION [None]
  - CHEST DISCOMFORT [None]
  - EAR DISORDER [None]
  - ERUCTATION [None]
  - HOT FLUSH [None]
  - NERVOUSNESS [None]
  - NIGHTMARE [None]
  - RESTLESSNESS [None]
  - SLEEP DISORDER [None]
  - TACHYCARDIA [None]
  - TINNITUS [None]
  - VERTIGO [None]
